FAERS Safety Report 17905559 (Version 1)
Quarter: 2020Q2

REPORT INFORMATION
  Report Type: Spontaneous
  Country: US (occurrence: US)
  Receive Date: 20200617
  Receipt Date: 20200617
  Transmission Date: 20200714
  Serious: Yes (Other)
  Sender: FDA-Public Use
  Company Number: US-TEVA-2020-US-1247545

PATIENT
  Sex: Female

DRUGS (1)
  1. METFORMIN HYDROCHLORIDE. [Suspect]
     Active Substance: METFORMIN HYDROCHLORIDE
     Indication: INSULIN RESISTANCE
     Route: 065

REACTIONS (7)
  - Adrenal disorder [Unknown]
  - Impaired work ability [Unknown]
  - Therapy cessation [Unknown]
  - Impaired driving ability [Unknown]
  - Loss of consciousness [Unknown]
  - Immune system disorder [Not Recovered/Not Resolved]
  - Epilepsy [Unknown]
